FAERS Safety Report 4422675-3 (Version None)
Quarter: 2004Q3

REPORT INFORMATION
  Report Type: 
  Country: None (occurrence: None)
  Receive Date: 20040713
  Receipt Date: 20030407
  Transmission Date: 20050211
  Serious: No
  Sender: FDA-Public Use
  Company Number: PHEH2003US02937

PATIENT
  Age: 81 Year
  Sex: Male

DRUGS (4)
  1. ELIDEL [Suspect]
     Indication: RASH
     Dosage: QD, TOPICAL
     Route: 061
     Dates: start: 20030405, end: 20030405
  2. LASIX [Concomitant]
  3. DILACOR XR (DILTIAZEM HYDROCHLORIDE) [Concomitant]
  4. LOTENSIN [Concomitant]

REACTIONS (1)
  - APPLICATION SITE VESICLES [None]
